FAERS Safety Report 5612172-1 (Version None)
Quarter: 2008Q1

REPORT INFORMATION
  Report Type: 
  Country: None (occurrence: None)
  Receive Date: 20080204
  Receipt Date: 20080121
  Transmission Date: 20080703
  Serious: Yes (Hospitalization, Other)
  Sender: FDA-Public Use
  Company Number: GB-AMGEN-US202692

PATIENT
  Age: 68 Year
  Sex: Female

DRUGS (11)
  1. ENBREL [Suspect]
     Indication: DRUG USE FOR UNKNOWN INDICATION
     Route: 058
     Dates: start: 20060926, end: 20061104
  2. METHOTREXATE [Suspect]
     Route: 048
     Dates: start: 20050815
  3. ACTONEL [Concomitant]
     Route: 048
  4. AMLODIPINE [Concomitant]
     Dosage: 5 MG, FREQUENCY UNSPECIFIED
     Route: 048
  5. ASPIRIN [Concomitant]
     Dosage: 75 MG, FREQUENCY UNSPECIFIED
     Route: 048
  6. PAROXETINE [Concomitant]
  7. LANSOPRAZOLE [Concomitant]
     Dosage: UNKNOWN
  8. FOLIC ACID [Concomitant]
     Dosage: 5 MG FREQUENCY UNKNOWN
     Route: 048
  9. OMEPRAZOLE [Concomitant]
     Dosage: UNKNOWN
     Route: 048
  10. PARACETAMOL [Concomitant]
     Route: 048
  11. BENDROFLUAZIDE [Concomitant]
     Dosage: 2.5 MG, FREQUENCY UNSPECIFIED
     Route: 048

REACTIONS (1)
  - COLON CANCER [None]
